FAERS Safety Report 17000126 (Version 3)
Quarter: 2019Q4

REPORT INFORMATION
  Report Type: Spontaneous
  Country: US (occurrence: US)
  Receive Date: 20191106
  Receipt Date: 20191212
  Transmission Date: 20200122
  Serious: Yes (Hospitalization, Other)
  Sender: FDA-Public Use
  Company Number: US-PFIZER INC-2019463100

PATIENT
  Age: 52 Year
  Sex: Male
  Weight: 99.79 kg

DRUGS (1)
  1. PREPARATION H MEDICATED WIPES [Suspect]
     Active Substance: WITCH HAZEL
     Indication: HAEMORRHOIDS
     Dosage: 1 DF, UNK [1 WIPE EVERY BOWEL MOVEMENT]
     Dates: start: 1985

REACTIONS (9)
  - Coronary artery disease [Recovered/Resolved]
  - Product physical issue [Unknown]
  - Colon cancer [Recovered/Resolved]
  - Arterial occlusive disease [Recovered/Resolved]
  - Product quality issue [Unknown]
  - Silent myocardial infarction [Unknown]
  - Dyspnoea [Not Recovered/Not Resolved]
  - Poor quality product administered [Unknown]
  - Myocardial infarction [Unknown]

NARRATIVE: CASE EVENT DATE: 2008
